FAERS Safety Report 9889777 (Version 2)
Quarter: 2014Q1

REPORT INFORMATION
  Report Type: Report from Study
  Country: US (occurrence: US)
  Receive Date: 20140212
  Receipt Date: 20140321
  Transmission Date: 20141002
  Serious: Yes (Death, Other)
  Sender: FDA-Public Use
  Company Number: US-ROCHE-1347637

PATIENT
  Age: 80 Year
  Sex: Female

DRUGS (6)
  1. RANIBIZUMAB [Suspect]
     Indication: AGE-RELATED MACULAR DEGENERATION
     Dosage: UNKNOWN DOSE
     Route: 050
     Dates: start: 20130209
  2. RANIBIZUMAB [Suspect]
     Route: 050
     Dates: start: 20130926
  3. OMEPRAZOLE [Concomitant]
     Indication: EPIGASTRIC DISCOMFORT
     Route: 065
     Dates: start: 20080130
  4. VITEYES AREDS ADVANCED [Concomitant]
  5. TOCOPHERYL ACETATE [Concomitant]
  6. ZINC OXIDE [Concomitant]

REACTIONS (3)
  - Glioma [Fatal]
  - Brain oedema [Not Recovered/Not Resolved]
  - Transient ischaemic attack [Recovering/Resolving]
